FAERS Safety Report 13681580 (Version 1)
Quarter: 2017Q2

REPORT INFORMATION
  Report Type: Report from Study
  Country: US (occurrence: US)
  Receive Date: 20170623
  Receipt Date: 20170623
  Transmission Date: 20170830
  Serious: Yes (Hospitalization, Other)
  Sender: FDA-Public Use
  Company Number: US-BEH-2017081280

PATIENT
  Age: 58 Year
  Sex: Female
  Weight: 136.5 kg

DRUGS (40)
  1. ZEMAIRA [Suspect]
     Active Substance: .ALPHA.1-PROTEINASE INHIBITOR HUMAN
     Indication: COR PULMONALE CHRONIC
     Dosage: 60 MG/KG, UNK
     Route: 042
     Dates: start: 20130111
  2. SODIUM CHLORIDE. [Concomitant]
     Active Substance: SODIUM CHLORIDE
  3. NOVOLOG [Concomitant]
     Active Substance: INSULIN ASPART
  4. VITAMIN C [Concomitant]
     Active Substance: ASCORBIC ACID
  5. ZEMAIRA [Suspect]
     Active Substance: .ALPHA.1-PROTEINASE INHIBITOR HUMAN
     Dosage: UNK
     Route: 042
  6. DIPHENHYDRAMINE. [Concomitant]
     Active Substance: DIPHENHYDRAMINE
  7. LIDOCAINE. [Concomitant]
     Active Substance: LIDOCAINE
  8. ZANTAC [Concomitant]
     Active Substance: RANITIDINE HYDROCHLORIDE
  9. MELATONIN                          /07129401/ [Concomitant]
  10. BECLOMETHASONE DIPROPIONATE        /00212602/ [Concomitant]
     Active Substance: BECLOMETHASONE DIPROPIONATE
  11. SINGULAIR [Concomitant]
     Active Substance: MONTELUKAST SODIUM
  12. LEVOFLOXACIN. [Concomitant]
     Active Substance: LEVOFLOXACIN
  13. ACETAMINOPHEN W/CODEINE PHOSPHATE [Concomitant]
     Active Substance: ACETAMINOPHEN\CODEINE PHOSPHATE
  14. PREDNISONE. [Concomitant]
     Active Substance: PREDNISONE
  15. LYRICA [Concomitant]
     Active Substance: PREGABALIN
  16. VICTOZA [Concomitant]
     Active Substance: LIRAGLUTIDE
  17. NEXIUM [Concomitant]
     Active Substance: ESOMEPRAZOLE MAGNESIUM
  18. STOOL SOFTENER (DOCUSATE) [Concomitant]
     Active Substance: DOCUSATE
  19. CYMBALTA [Concomitant]
     Active Substance: DULOXETINE HYDROCHLORIDE
  20. AZITHROMYCIN ANHYDROUS. [Concomitant]
     Active Substance: AZITHROMYCIN ANHYDROUS
  21. ALLEGRA-D                          /01367401/ [Concomitant]
  22. CALCIUM VITAMIN D3 RATIOPHARM [Concomitant]
  23. LEVEMIR [Concomitant]
     Active Substance: INSULIN DETEMIR
  24. ACYCLOVIR                          /00587301/ [Concomitant]
     Active Substance: ACYCLOVIR
  25. MULTIVITAMIN                       /00097801/ [Concomitant]
     Active Substance: VITAMINS
  26. SYMBICORT [Concomitant]
     Active Substance: BUDESONIDE\FORMOTEROL FUMARATE DIHYDRATE
  27. POTASSIUM CL [Concomitant]
     Active Substance: POTASSIUM CHLORIDE
  28. MAGNESIUM OXIDE. [Concomitant]
     Active Substance: MAGNESIUM OXIDE
  29. ZEMAIRA [Suspect]
     Active Substance: .ALPHA.1-PROTEINASE INHIBITOR HUMAN
     Indication: ALPHA-1 ANTI-TRYPSIN DEFICIENCY
     Dosage: 8 VIALS
     Route: 042
     Dates: start: 20120201
  30. HEPARIN [Concomitant]
     Active Substance: HEPARIN SODIUM
  31. EPIPEN [Concomitant]
     Active Substance: EPINEPHRINE
  32. XANAX [Concomitant]
     Active Substance: ALPRAZOLAM
  33. XYZAL [Concomitant]
     Active Substance: LEVOCETIRIZINE DIHYDROCHLORIDE
  34. SENOKOT [Concomitant]
     Active Substance: SENNOSIDES
  35. OXYGEN. [Concomitant]
     Active Substance: OXYGEN
  36. CELLCEPT [Concomitant]
     Active Substance: MYCOPHENOLATE MOFETIL\MYCOPHENOLATE MOFETIL HYDROCHLORIDE
  37. PROGRAF [Concomitant]
     Active Substance: TACROLIMUS\TACROLIMUS ANHYDROUS
  38. VITAMIN D3 [Concomitant]
     Active Substance: CHOLECALCIFEROL
  39. ETHAMBUTOL [Concomitant]
     Active Substance: ETHAMBUTOL HYDROCHLORIDE
  40. SINUS + CONGESTION RELIEF [Concomitant]

REACTIONS (5)
  - Tracheomalacia [Not Recovered/Not Resolved]
  - Bronchomalacia [Not Recovered/Not Resolved]
  - Dyspnoea [Not Recovered/Not Resolved]
  - Pneumonia [Recovered/Resolved]
  - Pneumothorax [Recovered/Resolved]

NARRATIVE: CASE EVENT DATE: 20170528
